FAERS Safety Report 6231010-X (Version None)
Quarter: 2009Q2

REPORT INFORMATION
  Report Type: 
  Country: None (occurrence: None)
  Receive Date: 20090616
  Receipt Date: 20090604
  Transmission Date: 20091009
  Serious: Yes (Hospitalization)
  Sender: FDA-Public Use
  Company Number: JP-ABBOTT-09P-087-0579735-00

PATIENT
  Age: 74 Year
  Sex: Male

DRUGS (4)
  1. LEUPROLIDE ACETATE [Suspect]
     Indication: PROSTATE CANCER STAGE II
     Route: 058
     Dates: start: 20061115, end: 20080123
  2. LEUPROLIDE ACETATE [Suspect]
     Dates: start: 20060530, end: 20061018
  3. BAYLOTENSIN [Concomitant]
     Indication: HYPERTENSION
     Route: 048
  4. VESICARE [Concomitant]
     Indication: HYPERTONIC BLADDER
     Dates: start: 20071212

REACTIONS (1)
  - CEREBRAL HAEMORRHAGE [None]
